FAERS Safety Report 18304440 (Version 3)
Quarter: 2020Q4

REPORT INFORMATION
  Report Type: Spontaneous
  Country: IN (occurrence: IN)
  Receive Date: 20200924
  Receipt Date: 20201208
  Transmission Date: 20210113
  Serious: Yes (Life-Threatening, Hospitalization, Other)
  Sender: FDA-Public Use
  Company Number: IN-ACCORD-202356

PATIENT
  Age: 37 Year
  Sex: Female

DRUGS (5)
  1. FLUOROURACIL. [Suspect]
     Active Substance: FLUOROURACIL
     Indication: RECTAL CANCER
     Dosage: 500 MG IV PUSH FOLLOWED BY 4000 MG  OVER 46 HOURS, SOLUTION FOR INJECTION/INFUSION
     Route: 041
     Dates: start: 20190606, end: 20190928
  2. SODIUM CHLORIDE. [Concomitant]
     Active Substance: SODIUM CHLORIDE
     Indication: SIGNET-RING CELL CARCINOMA
     Dosage: 5FU 4000MG DILUTED WITH 2 L NORMAL SALINE OVER 46 HOURS
     Route: 042
     Dates: start: 201906, end: 20190928
  3. FOLINIC ACID [Concomitant]
     Active Substance: LEUCOVORIN
     Indication: RECTAL CANCER
     Dates: start: 20190606, end: 20190928
  4. IRINOTECAN [Concomitant]
     Active Substance: IRINOTECAN
     Indication: RECTAL CANCER
     Dates: start: 20190606, end: 20190928
  5. FILGRASTIM [Concomitant]
     Active Substance: FILGRASTIM
     Indication: RECTAL CANCER
     Dates: start: 20191001, end: 20191001

REACTIONS (1)
  - Cerebrovascular accident [Recovering/Resolving]

NARRATIVE: CASE EVENT DATE: 20191001
